FAERS Safety Report 6554666-0 (Version None)
Quarter: 2010Q1

REPORT INFORMATION
  Report Type: 
  Country: None (occurrence: None)
  Receive Date: 20100127
  Receipt Date: 20091221
  Transmission Date: 20100710
  Serious: Yes (Life-Threatening)
  Sender: FDA-Public Use
  Company Number: CN-PFIZER INC-2010008752

PATIENT
  Age: 27 Year
  Sex: Female

DRUGS (1)
  1. HEMABATE [Suspect]
     Indication: UTERINE HYPOTONUS
     Dosage: 250 UG, SINGLE
     Route: 015

REACTIONS (3)
  - CARDIAC ARREST [None]
  - MUSCLE TWITCHING [None]
  - RESPIRATORY ARREST [None]
